FAERS Safety Report 13656553 (Version 1)
Quarter: 2017Q2

REPORT INFORMATION
  Report Type: Spontaneous
  Country: US (occurrence: US)
  Receive Date: 20170615
  Receipt Date: 20170615
  Transmission Date: 20170830
  Serious: Yes (Other)
  Sender: FDA-Public Use
  Company Number: US-PFIZER INC-2017258352

PATIENT
  Sex: Female

DRUGS (1)
  1. ADVIL [Suspect]
     Active Substance: IBUPROFEN
     Indication: MIGRAINE
     Dosage: 3 LIQUIDGELS, UNK
     Dates: start: 201611, end: 201611

REACTIONS (5)
  - Nasal congestion [Recovered/Resolved]
  - Anaphylactic shock [Recovered/Resolved]
  - Eye disorder [Recovered/Resolved]
  - Throat tightness [Recovered/Resolved]
  - Expired product administered [Unknown]

NARRATIVE: CASE EVENT DATE: 201611
